FAERS Safety Report 10747483 (Version 3)
Quarter: 2015Q1

REPORT INFORMATION
  Report Type: Spontaneous
  Country: HU (occurrence: HU)
  Receive Date: 20150129
  Receipt Date: 20150314
  Transmission Date: 20150721
  Serious: Yes (Hospitalization)
  Sender: FDA-Public Use
  Company Number: HU-BIOGENIDEC-2015BI011116

PATIENT
  Age: 51 Year
  Sex: Female

DRUGS (2)
  1. AVONEX [Suspect]
     Active Substance: INTERFERON BETA-1A
     Indication: MULTIPLE SCLEROSIS
     Route: 030
     Dates: start: 2000, end: 20150115
  2. BISOPROLOL [Concomitant]
     Active Substance: BISOPROLOL

REACTIONS (10)
  - Bone pain [Unknown]
  - Anaemia [Unknown]
  - Pyrexia [Unknown]
  - Tachycardia [Unknown]
  - Cough [Unknown]
  - General symptom [Unknown]
  - Decreased appetite [Unknown]
  - Multiple sclerosis relapse [Unknown]
  - Leukopenia [Unknown]
  - Systemic lupus erythematosus [Not Recovered/Not Resolved]

NARRATIVE: CASE EVENT DATE: 201401
